FAERS Safety Report 5545612-7 (Version None)
Quarter: 2007Q4

REPORT INFORMATION
  Report Type: 
  Country: None (occurrence: None)
  Receive Date: 20071211
  Receipt Date: 20071123
  Transmission Date: 20080405
  Serious: Yes (Other)
  Sender: FDA-Public Use
  Company Number: CA-ELI_LILLY_AND_COMPANY-CA200711006366

PATIENT
  Sex: Male
  Weight: 80 kg

DRUGS (12)
  1. DROTRECOGIN ALFA (ACTIVATED) [Suspect]
     Indication: SEPSIS
     Route: 042
  2. LEVOPHED [Concomitant]
     Indication: HYPOTENSION
     Route: 042
     Dates: start: 20071121
  3. HUMULIN 70/30 [Concomitant]
     Indication: BLOOD GLUCOSE
     Route: 042
     Dates: start: 20071121
  4. ZANTAC [Concomitant]
     Indication: PROPHYLAXIS
     Dates: start: 20071121
  5. PIPERACILLIN SODIUM W/TAZOBACTAM [Concomitant]
     Dates: start: 20071121
  6. NORVASC [Concomitant]
     Indication: MYOCARDIAL ISCHAEMIA
  7. LIPITOR [Concomitant]
     Indication: MYOCARDIAL ISCHAEMIA
  8. ASPIRIN [Concomitant]
     Indication: MYOCARDIAL ISCHAEMIA
  9. SYNTHROID [Concomitant]
     Indication: HYPOTHYROIDISM
     Dates: start: 20071122
  10. CEFOTAXIME [Concomitant]
     Dates: start: 20071120, end: 20071122
  11. TIMOLOL MALEATE [Concomitant]
     Indication: GLAUCOMA
  12. HEPARIN [Concomitant]
     Indication: THROMBOSIS PROPHYLAXIS
     Dates: start: 20071121

REACTIONS (1)
  - LOCALISED INTRAABDOMINAL FLUID COLLECTION [None]
